FAERS Safety Report 12998107 (Version 1)
Quarter: 2016Q4

REPORT INFORMATION
  Report Type: Spontaneous
  Country: US (occurrence: US)
  Receive Date: 20161205
  Receipt Date: 20161205
  Transmission Date: 20170207
  Serious: No
  Sender: FDA-Public Use
  Company Number: US-PFIZER INC-2016554154

PATIENT
  Age: 64 Year
  Sex: Male

DRUGS (1)
  1. CEFPODOXIME PROXETIL. [Suspect]
     Active Substance: CEFPODOXIME PROXETIL
     Dosage: UNK

REACTIONS (2)
  - Drug hypersensitivity [Unknown]
  - Diarrhoea [Unknown]
